FAERS Safety Report 7993686-6 (Version None)
Quarter: 2011Q4

REPORT INFORMATION
  Report Type: 
  Country: None (occurrence: None)
  Receive Date: 20111219
  Receipt Date: 20111115
  Transmission Date: 20120403
  Serious: Yes (Hospitalization)
  Sender: FDA-Public Use
  Company Number: PHHO2011NL13989

PATIENT
  Age: 50 Year
  Sex: Female

DRUGS (7)
  1. CYCLOPHOSPHAMIDE [Suspect]
     Indication: BREAST CANCER
     Dosage: 780 MG, UNK
     Route: 042
     Dates: start: 20110718, end: 20110808
  2. TAXOTERE [Suspect]
     Indication: BREAST CANCER
     Dosage: 120 MG, UNK
     Route: 042
     Dates: start: 20110718, end: 20110808
  3. DEXAMETHASONE [Concomitant]
  4. ADRIAMYCIN PFS [Suspect]
     Indication: BREAST CANCER
     Dosage: 78 MG, UNK
     Route: 042
     Dates: start: 20110718, end: 20110808
  5. ONDANSETRON [Concomitant]
  6. THYRAX [Concomitant]
     Dosage: 0.025 MG, UNK
  7. ZOLEDRONIC [Suspect]
     Indication: BREAST CANCER
     Dosage: UNK
     Dates: end: 20110808

REACTIONS (1)
  - FEBRILE NEUTROPENIA [None]
